FAERS Safety Report 25739160 (Version 4)
Quarter: 2025Q4

REPORT INFORMATION
  Report Type: Spontaneous
  Country: US (occurrence: US)
  Receive Date: 20250829
  Receipt Date: 20251215
  Transmission Date: 20260118
  Serious: Yes (Other)
  Sender: BRISTOL-MYERS SQUIBB COMPANY
  Company Number: US-BRISTOL-MYERS SQUIBB COMPANY-2025-119724

PATIENT
  Age: 72 Year
  Sex: Female

DRUGS (2)
  1. LENALIDOMIDE [Suspect]
     Active Substance: LENALIDOMIDE
     Indication: Plasma cell myeloma
     Dosage: TAKE 1 CAPSULE BY MOUTH ONCE A DAY FOR 14 DAYS THEN 7 DAYS OFF AND REPEAT
     Route: 048
  2. LENALIDOMIDE [Suspect]
     Active Substance: LENALIDOMIDE
     Dosage: TAKE 1 CAPSULE BY MOUTH ONCE A DAY FOR 14 DAYS THEN 7 DAYS OFF AND REPEAT
     Route: 048

REACTIONS (5)
  - Product distribution issue [Unknown]
  - Therapy interrupted [Unknown]
  - Illness [Recovering/Resolving]
  - Cataract [Not Recovered/Not Resolved]
  - Bronchitis [Unknown]
